FAERS Safety Report 10918447 (Version 1)
Quarter: 2015Q1

REPORT INFORMATION
  Report Type: Spontaneous
  Country: US (occurrence: US)
  Receive Date: 20150316
  Receipt Date: 20150316
  Transmission Date: 20150721
  Serious: No
  Sender: FDA-Public Use
  Company Number: US-GALDERMA-US14003615

PATIENT
  Age: 30 Year
  Sex: Female

DRUGS (5)
  1. NEUTROGENA AGE SHEILD  SUNSCREEN WITH SPF 110 [Concomitant]
     Indication: PROPHYLAXIS AGAINST SOLAR RADIATION
     Route: 061
     Dates: start: 201407
  2. SENSADYNE TOOTH PASTE [Concomitant]
     Dates: start: 2008
  3. NEUTROGENA FACE WASH [Concomitant]
     Route: 061
     Dates: start: 200606
  4. TRI-LUMA [Suspect]
     Active Substance: FLUOCINOLONE ACETONIDE\HYDROQUINONE\TRETINOIN
     Indication: PIGMENTATION DISORDER
     Route: 061
     Dates: start: 20140722, end: 20140901
  5. CREST PRO HEALTH COMPLETE RINSE [Concomitant]
     Dates: start: 201304

REACTIONS (3)
  - Drug ineffective [Not Recovered/Not Resolved]
  - Acne [Not Recovered/Not Resolved]
  - Inappropriate schedule of drug administration [Recovered/Resolved]

NARRATIVE: CASE EVENT DATE: 201407
